FAERS Safety Report 7690613-6 (Version None)
Quarter: 2011Q3

REPORT INFORMATION
  Report Type: 
  Country: None (occurrence: None)
  Receive Date: 20110812
  Receipt Date: 20110803
  Transmission Date: 20111222
  Serious: Yes (Hospitalization, Other)
  Sender: FDA-Public Use
  Company Number: 2010SP057664

PATIENT
  Age: 28 Year
  Sex: Female
  Weight: 72.5755 kg

DRUGS (1)
  1. NUVARING [Suspect]
     Indication: CONTRACEPTION
     Dates: start: 20060101, end: 20081101

REACTIONS (18)
  - VENTRICULAR EXTRASYSTOLES [None]
  - ENDOMETRIOSIS [None]
  - TACHYCARDIA [None]
  - CHOLESTEROSIS [None]
  - MIGRAINE [None]
  - INTESTINAL ADHESION LYSIS [None]
  - DEPRESSION [None]
  - CERVICAL DYSPLASIA [None]
  - GASTRITIS [None]
  - BENIGN FALLOPIAN TUBE NEOPLASM [None]
  - OVARIAN CYST [None]
  - CHOLECYSTITIS [None]
  - PULMONARY EMBOLISM [None]
  - PAIN [None]
  - PALPITATIONS [None]
  - ANXIETY [None]
  - CHOLELITHIASIS [None]
  - SCIATICA [None]
